FAERS Safety Report 8286844-7 (Version None)
Quarter: 2012Q2

REPORT INFORMATION
  Report Type: 
  Country: None (occurrence: None)
  Receive Date: 20120416
  Receipt Date: 20120403
  Transmission Date: 20120825
  Serious: Yes (Other)
  Sender: FDA-Public Use
  Company Number: DK-ELI_LILLY_AND_COMPANY-DK201109007419

PATIENT
  Sex: Male
  Weight: 75 kg

DRUGS (3)
  1. CYMBALTA [Suspect]
     Indication: DEPRESSION
     Dosage: 90 MG, QD
     Route: 048
     Dates: start: 20110504, end: 20110712
  2. ALCOHOL                            /00002101/ [Concomitant]
     Dosage: UNK, UNKNOWN
     Dates: start: 20110606
  3. ALCOHOL                            /00002101/ [Concomitant]
     Dosage: 30 U, WEEKLY (1/W)
     Dates: start: 20110201, end: 20110606

REACTIONS (2)
  - GAMMA-GLUTAMYLTRANSFERASE INCREASED [None]
  - TRANSAMINASES INCREASED [None]
